FAERS Safety Report 9152621 (Version 1)
Quarter: 2013Q1

REPORT INFORMATION
  Report Type: Report from Study
  Country: US (occurrence: US)
  Receive Date: 20130308
  Receipt Date: 20130308
  Transmission Date: 20140127
  Serious: Yes (Other)
  Sender: FDA-Public Use
  Company Number: US-ABBOTT-13P-163-1058071-00

PATIENT
  Age: 29 Year
  Sex: Female

DRUGS (2)
  1. HUMIRA [Suspect]
     Indication: CROHN^S DISEASE
  2. ZOLOFT [Concomitant]
     Indication: ANXIETY

REACTIONS (6)
  - Cyst [Unknown]
  - Mass [Recovered/Resolved]
  - Cerebrospinal fluid retention [Recovered/Resolved]
  - Mood swings [Unknown]
  - Depressed mood [Unknown]
  - Headache [Unknown]
